FAERS Safety Report 17978262 (Version 2)
Quarter: 2021Q2

REPORT INFORMATION
  Report Type: Spontaneous
  Country: US (occurrence: US)
  Receive Date: 20200703
  Receipt Date: 20210407
  Transmission Date: 20210717
  Serious: Yes (Other)
  Sender: FDA-Public Use
  Company Number: US-GLAXOSMITHKLINE-US2020118766

PATIENT
  Sex: Male

DRUGS (10)
  1. ZANTAC [Suspect]
     Active Substance: RANITIDINE HYDROCHLORIDE
     Indication: DYSPNOEA
     Dosage: UNKNOWN AT THIS TIME BOTH
     Route: 065
     Dates: start: 198002, end: 200002
  2. ZANTAC [Suspect]
     Active Substance: RANITIDINE HYDROCHLORIDE
     Indication: NASAL CONGESTION
  3. ZANTAC [Suspect]
     Active Substance: RANITIDINE HYDROCHLORIDE
     Indication: DYSPNOEA
     Dosage: UNKNOWN AT THIS TIME BOTH
     Route: 065
     Dates: start: 198002, end: 200002
  4. RANITIDINE CAPSULE [Suspect]
     Active Substance: RANITIDINE
     Indication: NASAL CONGESTION
  5. ZANTAC [Suspect]
     Active Substance: RANITIDINE HYDROCHLORIDE
     Route: 065
  6. ZANTAC [Suspect]
     Active Substance: RANITIDINE HYDROCHLORIDE
     Route: 065
  7. ZANTAC [Suspect]
     Active Substance: RANITIDINE HYDROCHLORIDE
     Indication: DYSPNOEA
     Dosage: UNKNOWN AT THIS TIME BOTH
     Route: 065
     Dates: start: 198002, end: 200002
  8. RANITIDINE CAPSULE [Suspect]
     Active Substance: RANITIDINE
     Indication: DYSPNOEA
     Dosage: UNKNOWN AT THIS TIME BOTH
     Route: 065
     Dates: start: 198002, end: 200002
  9. ZANTAC [Suspect]
     Active Substance: RANITIDINE HYDROCHLORIDE
     Indication: NASAL CONGESTION
  10. ZANTAC [Suspect]
     Active Substance: RANITIDINE HYDROCHLORIDE
     Indication: NASAL CONGESTION

REACTIONS (1)
  - Colorectal cancer [Unknown]
